FAERS Safety Report 7464501-4 (Version None)
Quarter: 2011Q2

REPORT INFORMATION
  Report Type: 
  Country: None (occurrence: None)
  Receive Date: 20110509
  Receipt Date: 20110426
  Transmission Date: 20111010
  Serious: Yes (Hospitalization, Other)
  Sender: FDA-Public Use
  Company Number: FR-JNJFOC-20110412357

PATIENT
  Sex: Female

DRUGS (11)
  1. GALANTAMINE HYDROBROMIDE [Suspect]
     Indication: PRODUCT USED FOR UNKNOWN INDICATION
     Route: 048
  2. MINISINTROM [Concomitant]
     Route: 048
  3. LEVOTHYROX [Concomitant]
     Route: 048
  4. PARACETAMOL [Concomitant]
     Route: 048
  5. AMIODARONE HCL [Suspect]
     Indication: PRODUCT USED FOR UNKNOWN INDICATION
     Route: 065
  6. NORSET [Concomitant]
     Route: 048
  7. TRINIPATCH [Concomitant]
     Route: 062
  8. PARIET [Concomitant]
     Route: 048
  9. PARIET [Concomitant]
     Route: 048
  10. MICARDIS HCT [Concomitant]
     Route: 048
  11. ZOPICLONE [Concomitant]
     Route: 048

REACTIONS (9)
  - ATRIOVENTRICULAR BLOCK [None]
  - SOMNOLENCE [None]
  - HYPONATRAEMIA [None]
  - MALAISE [None]
  - FALL [None]
  - BRADYCARDIA [None]
  - PALLOR [None]
  - PSYCHOMOTOR SKILLS IMPAIRED [None]
  - BUNDLE BRANCH BLOCK LEFT [None]
